FAERS Safety Report 7775385-9 (Version None)
Quarter: 2011Q3

REPORT INFORMATION
  Report Type: 
  Country: None (occurrence: None)
  Receive Date: 20110923
  Receipt Date: 20110914
  Transmission Date: 20111222
  Serious: Yes (Hospitalization, Other)
  Sender: FDA-Public Use
  Company Number: PHHY2010US77022

PATIENT
  Sex: Male

DRUGS (5)
  1. TOBI [Suspect]
     Indication: CYSTIC FIBROSIS
     Dosage: 300 MG, BID
  2. VITAMIN A W/VITAMIN D/VITAMIN E/VITAMIN K/ [Concomitant]
  3. COLESTIN [Concomitant]
  4. PROGRAF [Concomitant]
  5. PANCREATIC ENZYMES [Concomitant]

REACTIONS (6)
  - PYREXIA [None]
  - PAIN [None]
  - PNEUMONIA [None]
  - LUNG TRANSPLANT REJECTION [None]
  - MALAISE [None]
  - INFLUENZA LIKE ILLNESS [None]
